FAERS Safety Report 8392032-6 (Version None)
Quarter: 2012Q2

REPORT INFORMATION
  Report Type: 
  Country: None (occurrence: None)
  Receive Date: 20120529
  Receipt Date: 20120514
  Transmission Date: 20120825
  Serious: Yes (Other)
  Sender: FDA-Public Use
  Company Number: CN-JNJFOC-20120513029

PATIENT
  Age: 34 Year
  Sex: Female

DRUGS (1)
  1. KETOCONAZOLE [Suspect]
     Indication: SKIN EXFOLIATION
     Dosage: Q.S. (SUFFICIENT QUANTITY)
     Route: 061
     Dates: start: 20120511, end: 20120512

REACTIONS (4)
  - APPLICATION SITE SWELLING [None]
  - PRODUCT COUNTERFEIT [None]
  - APPLICATION SITE PAIN [None]
  - APPLICATION SITE VESICLES [None]
